FAERS Safety Report 14125522 (Version 1)
Quarter: 2017Q4

REPORT INFORMATION
  Report Type: Spontaneous
  Country: TR (occurrence: TR)
  Receive Date: 20171025
  Receipt Date: 20171025
  Transmission Date: 20180321
  Serious: Yes (Other)
  Sender: FDA-Public Use
  Company Number: TR-GLAXOSMITHKLINE-TR2017GSK162014

PATIENT
  Age: 26 Year
  Sex: Male

DRUGS (5)
  1. PREDNOL [Concomitant]
     Active Substance: METHYLPREDNISOLONE
     Indication: INTERSTITIAL LUNG DISEASE
     Dosage: 2 MG, UNK
     Route: 048
  2. NAC (ACETYLCYSTEIN) [Concomitant]
     Indication: INTERSTITIAL LUNG DISEASE
     Dosage: 600 MG, UNK
     Route: 048
  3. LANSOR [Concomitant]
     Active Substance: LANSOPRAZOLE
     Indication: INTERSTITIAL LUNG DISEASE
     Dosage: 40 MG, UNK
     Route: 048
  4. RELVAR ELLIPTA [Suspect]
     Active Substance: FLUTICASONE FUROATE\VILANTEROL TRIFENATATE
     Indication: INTERSTITIAL LUNG DISEASE
  5. RELVAR ELLIPTA [Suspect]
     Active Substance: FLUTICASONE FUROATE\VILANTEROL TRIFENATATE
     Indication: ASTHMA
     Dosage: 100 UG, UNK
     Route: 055

REACTIONS (2)
  - Head injury [Recovered/Resolved]
  - Fall [Recovered/Resolved]
